FAERS Safety Report 6795118-2 (Version None)
Quarter: 2010Q2

REPORT INFORMATION
  Report Type: 
  Country: None (occurrence: None)
  Receive Date: 20100625
  Receipt Date: 20100617
  Transmission Date: 20101027
  Serious: Yes (Other)
  Sender: FDA-Public Use
  Company Number: AU-ROCHE-702946

PATIENT
  Sex: Female
  Weight: 75 kg

DRUGS (10)
  1. ACTEMRA [Suspect]
     Indication: RHEUMATOID ARTHRITIS
     Dosage: FORM: INFUSION
     Route: 042
     Dates: start: 20091101
  2. DICLOFENAC SODIUM [Suspect]
     Indication: DRUG USE FOR UNKNOWN INDICATION
     Route: 048
     Dates: start: 20060101
  3. PREDNISONE [Concomitant]
     Route: 048
  4. ENDEP [Concomitant]
  5. COVERSYL [Concomitant]
  6. LEXAPRO [Concomitant]
  7. ARAVA [Concomitant]
  8. PANADOL FORTE [Concomitant]
  9. ACETAMINOPHEN W/ CODEINE [Concomitant]
  10. LEFLUNOMIDE [Concomitant]
     Route: 048

REACTIONS (1)
  - EPISTAXIS [None]
